FAERS Safety Report 4758900-9 (Version None)
Quarter: 2005Q3

REPORT INFORMATION
  Report Type: 
  Country: None (occurrence: None)
  Receive Date: 20050831
  Receipt Date: 20050818
  Transmission Date: 20060218
  Serious: Yes (Hospitalization)
  Sender: FDA-Public Use
  Company Number: 05-08-1455

PATIENT
  Age: 48 Year
  Sex: Male

DRUGS (1)
  1. CLOZAPINE [Suspect]
     Indication: SCHIZOPHRENIA, DISORGANISED TYPE
     Dosage: 100-200MG QD ORAL
     Route: 048
     Dates: start: 20010201

REACTIONS (4)
  - CONDITION AGGRAVATED [None]
  - DRUG ABUSER [None]
  - SCHIZOPHRENIA, DISORGANISED TYPE [None]
  - TREATMENT NONCOMPLIANCE [None]
